FAERS Safety Report 9686570 (Version 1)
Quarter: 2013Q4

REPORT INFORMATION
  Report Type: Spontaneous
  Country: GB (occurrence: GB)
  Receive Date: 20131113
  Receipt Date: 20131113
  Transmission Date: 20140711
  Serious: Yes (Other)
  Sender: FDA-Public Use
  Company Number: GB-TEVA-442356ISR

PATIENT
  Sex: Female

DRUGS (2)
  1. TRIMETHOPRIM [Suspect]
  2. METOJECT [Suspect]
     Indication: RHEUMATIC DISORDER

REACTIONS (1)
  - Pancytopenia [Unknown]
